FAERS Safety Report 9417051 (Version 1)
Quarter: 2013Q3

REPORT INFORMATION
  Report Type: Spontaneous
  Country: US (occurrence: US)
  Receive Date: 20130724
  Receipt Date: 20130724
  Transmission Date: 20140515
  Serious: No
  Sender: FDA-Public Use
  Company Number: US-009507513-2012SP002769

PATIENT
  Sex: Female

DRUGS (1)
  1. DULERA [Suspect]
     Indication: ASTHMA
     Route: 055
     Dates: start: 2011

REACTIONS (2)
  - No adverse event [Unknown]
  - Exposure during pregnancy [Not Recovered/Not Resolved]
